FAERS Safety Report 19591250 (Version 1)
Quarter: 2021Q3

REPORT INFORMATION
  Report Type: Spontaneous
  Country: SE (occurrence: SE)
  Receive Date: 20210721
  Receipt Date: 20210721
  Transmission Date: 20211014
  Serious: Yes (Other)
  Sender: FDA-Public Use
  Company Number: SE-BAYER-2021-175665

PATIENT
  Age: 21 Year
  Sex: Female
  Weight: 60 kg

DRUGS (1)
  1. KYLEENA [Suspect]
     Active Substance: LEVONORGESTREL
     Indication: CONTRACEPTION
     Dosage: 17.5 ?G PER DAY, CONTINUOUSLY
     Route: 015
     Dates: start: 20191209, end: 20210413

REACTIONS (5)
  - Condition aggravated [Not Recovered/Not Resolved]
  - Depressed mood [Not Recovered/Not Resolved]
  - Anxiety [Not Recovered/Not Resolved]
  - Libido decreased [Not Recovered/Not Resolved]
  - Dysmenorrhoea [Not Recovered/Not Resolved]

NARRATIVE: CASE EVENT DATE: 20191209
